FAERS Safety Report 15356861 (Version 2)
Quarter: 2018Q4

REPORT INFORMATION
  Report Type: Spontaneous
  Country: US (occurrence: US)
  Receive Date: 20180906
  Receipt Date: 20181213
  Transmission Date: 20190204
  Serious: No
  Sender: FDA-Public Use
  Company Number: US-SA-2018SA249006

PATIENT
  Sex: Male

DRUGS (4)
  1. ALIROCUMAB PREFILLED PEN [Suspect]
     Active Substance: ALIROCUMAB
     Indication: PROSTATE CANCER
     Dosage: 150 MG/ML, QOW
     Route: 058
     Dates: start: 20180615
  2. ALIROCUMAB [Suspect]
     Active Substance: ALIROCUMAB
     Indication: MULTIPLE SCLEROSIS
  3. ALIROCUMAB [Suspect]
     Active Substance: ALIROCUMAB
     Indication: PROSTATE CANCER
     Dosage: 150 MG/ML, QOW
     Route: 058
     Dates: start: 20180615
  4. ALIROCUMAB PREFILLED PEN [Suspect]
     Active Substance: ALIROCUMAB
     Indication: MULTIPLE SCLEROSIS

REACTIONS (1)
  - Muscle spasms [Unknown]
